FAERS Safety Report 12573158 (Version 3)
Quarter: 2018Q3

REPORT INFORMATION
  Report Type: Spontaneous
  Country: PT (occurrence: PT)
  Receive Date: 20160720
  Receipt Date: 20180816
  Transmission Date: 20181010
  Serious: Yes (Hospitalization, Other)
  Sender: FDA-Public Use
  Company Number: PT-AUROBINDO-AUR-APL-2016-09083

PATIENT
  Age: 53 Year
  Sex: Female

DRUGS (22)
  1. SERTRALINE [Interacting]
     Active Substance: SERTRALINE HYDROCHLORIDE
  2. RISPERIDONE 4MG [Suspect]
     Active Substance: RISPERIDONE
     Indication: DEPRESSION
     Dosage: 2 MG, DAILY
     Route: 065
  3. SUCCINYLCHOLINE                    /00057702/ [Concomitant]
     Dosage: 55 MILLIGRAM
  4. THIOPENTAL [Concomitant]
     Active Substance: THIOPENTAL
  5. ATROPINE. [Concomitant]
     Active Substance: ATROPINE
  6. ATROPINE. [Concomitant]
     Active Substance: ATROPINE
  7. SERTRALINE [Suspect]
     Active Substance: SERTRALINE HYDROCHLORIDE
     Indication: MAJOR DEPRESSION
     Dosage: 200 MG, DAILY
     Route: 065
  8. SERTRALINE [Interacting]
     Active Substance: SERTRALINE HYDROCHLORIDE
  9. ATROPINE. [Concomitant]
     Active Substance: ATROPINE
     Dosage: .5 MILLIGRAM
  10. SUCCINYLCHOLINE                    /00057702/ [Concomitant]
     Indication: PRODUCT USED FOR UNKNOWN INDICATION
     Dosage: 55 MG, UNK
     Route: 065
  11. ATROPINE. [Concomitant]
     Active Substance: ATROPINE
     Indication: PRODUCT USED FOR UNKNOWN INDICATION
     Dosage: 0.5 MG, UNK
  12. THIOPENTAL [Concomitant]
     Active Substance: THIOPENTAL
     Indication: PRODUCT USED FOR UNKNOWN INDICATION
     Dosage: 275 MG, UNK
     Route: 065
  13. SUCCINYLCHOLINE                    /00057702/ [Concomitant]
  14. SUCCINYLCHOLINE                    /00057702/ [Concomitant]
  15. SERTRALINE [Interacting]
     Active Substance: SERTRALINE HYDROCHLORIDE
     Indication: DEPRESSION
     Dosage: 200 MG, UNK
     Route: 065
  16. BUPROPION. [Interacting]
     Active Substance: BUPROPION
     Indication: DEPRESSION
     Dosage: 300 MG, DAILY
     Route: 065
  17. BUPROPION. [Interacting]
     Active Substance: BUPROPION
     Dosage: SLOW RELEASE (TITRATED AT 300 MG/DAY),
  18. RISPERIDONE 4MG [Suspect]
     Active Substance: RISPERIDONE
     Dosage: 4 MG, DAILY
     Route: 065
  19. BUPROPION. [Interacting]
     Active Substance: BUPROPION
     Indication: MAJOR DEPRESSION
     Dosage: TITRATED AT 300 MG/DAY,
  20. BUPROPION. [Interacting]
     Active Substance: BUPROPION
     Dosage: SLOW RELEASE (TITRATED AT 300 MG/DAY),
  21. THIOPENTAL [Concomitant]
     Active Substance: THIOPENTAL
     Dosage: 275 MILLIGRAM
  22. THIOPENTAL [Concomitant]
     Active Substance: THIOPENTAL

REACTIONS (2)
  - Generalised tonic-clonic seizure [Recovered/Resolved]
  - Drug interaction [Recovered/Resolved]
